FAERS Safety Report 6666267-4 (Version None)
Quarter: 2010Q2

REPORT INFORMATION
  Report Type: 
  Country: None (occurrence: None)
  Receive Date: 20100402
  Receipt Date: 20100318
  Transmission Date: 20101027
  Serious: Yes (Other)
  Sender: FDA-Public Use
  Company Number: CA-GENENTECH-286921

PATIENT
  Sex: Male
  Weight: 75 kg

DRUGS (12)
  1. XOLAIR [Suspect]
     Indication: ASTHMA
     Dosage: 300 MG, UNK
     Route: 058
     Dates: start: 20090609
  2. XOLAIR [Suspect]
     Dosage: 300 MG, UNK
     Dates: start: 20090706
  3. XOLAIR [Suspect]
     Dosage: 300 MG, Q2W
     Route: 058
     Dates: start: 20100318
  4. PREDNISONE TAB [Concomitant]
     Indication: DRUG USE FOR UNKNOWN INDICATION
  5. VENTOLIN [Concomitant]
     Indication: DRUG USE FOR UNKNOWN INDICATION
  6. ADVAIR DISKUS 100/50 [Concomitant]
     Indication: DRUG USE FOR UNKNOWN INDICATION
  7. SINGULAIR [Concomitant]
     Indication: DRUG USE FOR UNKNOWN INDICATION
  8. NASONEX [Concomitant]
     Indication: DRUG USE FOR UNKNOWN INDICATION
  9. ADALAT [Concomitant]
     Indication: DRUG USE FOR UNKNOWN INDICATION
  10. LIPITOR [Concomitant]
     Indication: DRUG USE FOR UNKNOWN INDICATION
  11. ASAPHEN [Concomitant]
     Indication: DRUG USE FOR UNKNOWN INDICATION
  12. DILAUDID [Concomitant]
     Indication: DRUG USE FOR UNKNOWN INDICATION

REACTIONS (6)
  - COUGH [None]
  - HEART RATE INCREASED [None]
  - HYPERTENSION [None]
  - NASOPHARYNGITIS [None]
  - SNEEZING [None]
  - THROAT IRRITATION [None]
